FAERS Safety Report 21738301 (Version 1)
Quarter: 2022Q4

REPORT INFORMATION
  Report Type: Spontaneous
  Country: US (occurrence: US)
  Receive Date: 20221216
  Receipt Date: 20221216
  Transmission Date: 20230113
  Serious: No
  Sender: FDA-Public Use
  Company Number: US-BIOGEN-2022BI01154898

PATIENT
  Sex: Female

DRUGS (1)
  1. TYSABRI [Suspect]
     Active Substance: NATALIZUMAB
     Indication: Multiple sclerosis
     Route: 050
     Dates: start: 20220611

REACTIONS (6)
  - Incorrect drug administration rate [Unknown]
  - Wrong technique in product usage process [Unknown]
  - Infusion site induration [Not Recovered/Not Resolved]
  - Trigeminal neuralgia [Recovered/Resolved]
  - Increased tendency to bruise [Recovered/Resolved]
  - Nausea [Recovered/Resolved]

NARRATIVE: CASE EVENT DATE: 20220101
